FAERS Safety Report 10033986 (Version 2)
Quarter: 2014Q2

REPORT INFORMATION
  Report Type: Spontaneous
  Country: IT (occurrence: None)
  Receive Date: 20140320
  Receipt Date: 20140404
  Transmission Date: 20141212
  Serious: Yes (Other)
  Sender: FDA-Public Use
  Company Number: AUR-APL-2014-03085

PATIENT
  Age: 67 Year
  Sex: Female
  Weight: 68 kg

DRUGS (1)
  1. CEFTRIAXONE [Suspect]
     Indication: BRONCHITIS
     Dosage: 1GM , TOTAL INTRAMUSCULAR
     Route: 030
     Dates: start: 20140303, end: 20140303

REACTIONS (2)
  - Oropharyngeal pain [None]
  - Pruritus [None]
